FAERS Safety Report 23996310 (Version 9)
Quarter: 2024Q4

REPORT INFORMATION
  Report Type: Report from Study
  Country: DE (occurrence: DE)
  Receive Date: 20240620
  Receipt Date: 20241125
  Transmission Date: 20250115
  Serious: Yes (Other)
  Sender: BAUSCH AND LOMB
  Company Number: DE-SA-SAC20240603000610

PATIENT
  Age: 72 Year
  Sex: Female
  Weight: 68.6 kg

DRUGS (51)
  1. DEXAMETHASONE [Suspect]
     Active Substance: DEXAMETHASONE
     Indication: Plasma cell myeloma refractory
     Dosage: 20 MG, QW
     Route: 065
     Dates: start: 20240322, end: 20240413
  2. DEXAMETHASONE [Suspect]
     Active Substance: DEXAMETHASONE
     Dosage: 20 MG, QW
     Route: 065
     Dates: start: 20240419, end: 20240427
  3. DEXAMETHASONE [Suspect]
     Active Substance: DEXAMETHASONE
     Dosage: 20 MG, QW
     Route: 065
     Dates: start: 20240612, end: 20240627
  4. ISATUXIMAB [Suspect]
     Active Substance: ISATUXIMAB
     Indication: Plasma cell myeloma refractory
     Dosage: 700 MG, QW AT 18:50
     Route: 065
     Dates: start: 20240322, end: 20240412
  5. ISATUXIMAB [Suspect]
     Active Substance: ISATUXIMAB
     Dosage: 688 MG, BIW
     Route: 065
     Dates: start: 20240516, end: 20240530
  6. ISATUXIMAB [Suspect]
     Active Substance: ISATUXIMAB
     Dosage: 688 MG, BIW
     Route: 065
     Dates: start: 20240612, end: 20240627
  7. ISATUXIMAB [Suspect]
     Active Substance: ISATUXIMAB
     Dosage: 700 MG, BIW
     Route: 065
     Dates: start: 20240419, end: 20240503
  8. CARFILZOMIB [Suspect]
     Active Substance: CARFILZOMIB
     Indication: Plasma cell myeloma refractory
     Dosage: 96 MG ZYKLUS2 - D1/2, D8/9 D15/16
     Route: 065
     Dates: start: 20240419, end: 20240504
  9. CARFILZOMIB [Suspect]
     Active Substance: CARFILZOMIB
     Dosage: 34 MG YKLUS 1 D1/2
     Route: 065
     Dates: start: 20240322, end: 20240323
  10. CARFILZOMIB [Suspect]
     Active Substance: CARFILZOMIB
     Dosage: 95 MG, QW
     Route: 065
     Dates: start: 20240612, end: 20240627
  11. CARFILZOMIB [Suspect]
     Active Substance: CARFILZOMIB
     Dosage: 95 MG, QW
     Route: 065
     Dates: start: 20240516, end: 20240531
  12. CARFILZOMIB [Suspect]
     Active Substance: CARFILZOMIB
     Dosage: 96 MG, QW
     Route: 065
     Dates: start: 20240329, end: 20240406
  13. MELATONIN [Concomitant]
     Active Substance: MELATONIN
     Indication: Sleep disorder
     Dates: start: 20240416
  14. TINZAPARIN [Concomitant]
     Active Substance: TINZAPARIN
     Indication: Thrombosis prophylaxis
     Dates: start: 20240322, end: 20240517
  15. BENSERAZIDE\LEVODOPA [Concomitant]
     Active Substance: BENSERAZIDE\LEVODOPA
     Indication: Product used for unknown indication
     Dosage: UNK
     Dates: start: 2023
  16. NALOXONE HYDROCHLORIDE\TILIDINE HYDROCHLORIDE [Concomitant]
     Active Substance: NALOXONE HYDROCHLORIDE\TILIDINE HYDROCHLORIDE
     Indication: Back pain
     Dates: start: 20240426, end: 20240612
  17. METAMIZOLE [Concomitant]
     Active Substance: METAMIZOLE
     Indication: Pain
     Dosage: UNK
     Dates: start: 20240407, end: 20240407
  18. METAMIZOLE [Concomitant]
     Active Substance: METAMIZOLE
     Indication: Back pain
     Dosage: UNK
     Dates: start: 20240325
  19. METAMIZOLE [Concomitant]
     Active Substance: METAMIZOLE
     Indication: Headache
     Dosage: UNK
     Dates: start: 20240612, end: 20240615
  20. PRAMIPEXOLE [Concomitant]
     Active Substance: PRAMIPEXOLE\PRAMIPEXOLE DIHYDROCHLORIDE
     Indication: Restless legs syndrome
     Dosage: UNK
     Dates: start: 2023
  21. ZOLPIDEM [Concomitant]
     Active Substance: ZOLPIDEM TARTRATE
     Indication: Restlessness
     Dates: start: 20230325, end: 20230325
  22. CANDESARTAN CILEXETIL [Concomitant]
     Active Substance: CANDESARTAN CILEXETIL
     Indication: Hypertension
     Dosage: UNK
     Dates: start: 202304, end: 202305
  23. AMLODIPINE MALEATE [Concomitant]
     Active Substance: AMLODIPINE MALEATE
     Indication: Hypertension
     Dosage: UNK
     Dates: start: 202305
  24. BISOPROLOL FUMARATE [Concomitant]
     Active Substance: BISOPROLOL FUMARATE
     Indication: Hypertension
     Dosage: UNK
     Dates: start: 202305
  25. GRANISETRON [Concomitant]
     Active Substance: GRANISETRON
     Indication: Abdominal discomfort
     Dosage: UNK
     Dates: start: 202310, end: 2023
  26. GRANISETRON [Concomitant]
     Active Substance: GRANISETRON
     Indication: Chronic gastritis
     Dosage: UNK
     Dates: start: 20240620, end: 20240621
  27. OLANZAPINE [Concomitant]
     Active Substance: OLANZAPINE
     Indication: Chronic gastritis
     Dosage: UNK
     Dates: start: 2023, end: 20240407
  28. VALERIAN ROOT [VALERIANA OFFICINALIS] [Concomitant]
     Indication: Insomnia
     Dates: start: 20240325, end: 20240325
  29. ACYCLOVIR [Concomitant]
     Active Substance: ACYCLOVIR
     Indication: Prophylaxis
     Dosage: UNK
     Dates: start: 2023
  30. AMITRIPTYLINE HYDROCHLORIDE [Concomitant]
     Active Substance: AMITRIPTYLINE HYDROCHLORIDE
     Indication: Depression
     Dosage: UNK
     Dates: start: 2023
  31. ESOMEPRAZOLE [Concomitant]
     Active Substance: ESOMEPRAZOLE
     Indication: Chronic gastritis
     Dosage: UNK
     Dates: start: 2023
  32. CLEMASTINE [Concomitant]
     Active Substance: CLEMASTINE
     Indication: Premedication
     Dosage: UNK
     Dates: start: 20240322
  33. CLEMASTINE [Concomitant]
     Active Substance: CLEMASTINE
     Dosage: UNK
     Dates: start: 20240516, end: 20240516
  34. CLEMASTINE [Concomitant]
     Active Substance: CLEMASTINE
     Dosage: AT 10:00
     Dates: start: 20240612
  35. CODEINE PHOSPHATE [Concomitant]
     Active Substance: CODEINE PHOSPHATE
     Indication: Cough
     Dosage: UNK
     Dates: start: 20240322, end: 20240322
  36. JONOSTERIL [Concomitant]
     Indication: Premedication
     Dosage: UNK
     Dates: start: 20240322
  37. JONOSTERIL [Concomitant]
     Dosage: UNK
     Dates: start: 20240516, end: 20240518
  38. JONOSTERIL [Concomitant]
     Dosage: AT 08:30
     Dates: start: 20230612
  39. XGEVA [Concomitant]
     Active Substance: DENOSUMAB
     Indication: Prophylaxis
     Dates: start: 20240420
  40. POLYETHYLENE GLYCOLS [Concomitant]
     Active Substance: POLYETHYLENE GLYCOLS
     Indication: Constipation
     Dosage: UNK
     Dates: start: 20240531
  41. COTRIMOXAZOLE [Concomitant]
     Active Substance: SULFAMETHOXAZOLE\TRIMETHOPRIM
     Indication: Infection prophylaxis
     Dates: start: 20240325
  42. ACETAMINOPHEN [Concomitant]
     Active Substance: ACETAMINOPHEN
     Indication: Premedication
     Dates: start: 20240322
  43. ACETAMINOPHEN [Concomitant]
     Active Substance: ACETAMINOPHEN
     Dates: start: 20240516, end: 20240516
  44. ACETAMINOPHEN [Concomitant]
     Active Substance: ACETAMINOPHEN
     Dosage: UNK AT 10: 00
     Dates: start: 20240612
  45. RINGER-ACETAT [Concomitant]
     Indication: Product used for unknown indication
     Dates: start: 20240530, end: 20240531
  46. ELEKTROLYT 153 [Concomitant]
     Indication: Product used for unknown indication
     Dates: start: 20240612, end: 20240613
  47. ELEKTROLYT 153 [Concomitant]
     Dates: start: 20240619, end: 20240620
  48. HYDROMORPHONE [Concomitant]
     Active Substance: HYDROMORPHONE
     Indication: Spinal pain
     Dates: start: 20240531, end: 20240612
  49. DEXTROSE [Concomitant]
     Active Substance: DEXTROSE MONOHYDRATE
     Indication: Product used for unknown indication
     Dosage: 5%
     Dates: start: 20240322
  50. DEXTROSE [Concomitant]
     Active Substance: DEXTROSE MONOHYDRATE
     Dosage: 5% AT 12:30
     Dates: start: 20240612
  51. DEXAMETHASONE [Concomitant]
     Active Substance: DEXAMETHASONE
     Indication: Premedication
     Dosage: EVERY CYCLE
     Dates: start: 20240322

REACTIONS (7)
  - Hypertensive crisis [Recovered/Resolved]
  - Abdominal pain [Not Recovered/Not Resolved]
  - Weight decreased [Recovered/Resolved]
  - Diarrhoea [Unknown]
  - Infusion related reaction [Recovered/Resolved]
  - Venous thrombosis limb [Unknown]
  - Nausea [Recovered/Resolved]

NARRATIVE: CASE EVENT DATE: 20240401
